FAERS Safety Report 8955984 (Version 1)
Quarter: 2012Q4

REPORT INFORMATION
  Report Type: 
  Country: FR (occurrence: FR)
  Receive Date: 20121210
  Receipt Date: 20121210
  Transmission Date: 20130627
  Serious: Yes (Hospitalization)
  Sender: FDA-Public Use
  Company Number: FR-ELI_LILLY_AND_COMPANY-FR201211008146

PATIENT
  Age: 82 Year
  Sex: Female

DRUGS (4)
  1. FORSTEO [Suspect]
     Indication: OSTEOPOROSIS
     Dosage: 20 ug, qd
     Route: 058
     Dates: start: 20110901, end: 20120601
  2. FORSTEO [Suspect]
     Dosage: 20 ug, qd
     Route: 058
     Dates: start: 20120921
  3. SOTALEX [Concomitant]
     Dosage: UNK
  4. COUMADINE [Concomitant]
     Dosage: UNK

REACTIONS (2)
  - Hiatus hernia [Recovered/Resolved]
  - Intentional drug misuse [Recovered/Resolved]
